FAERS Safety Report 10979158 (Version 1)
Quarter: 2015Q2

REPORT INFORMATION
  Report Type: Spontaneous
  Country: BE (occurrence: BE)
  Receive Date: 20150402
  Receipt Date: 20150402
  Transmission Date: 20150821
  Serious: Yes (Other)
  Sender: FDA-Public Use
  Company Number: BE-GILEAD-2015-0145538

PATIENT
  Sex: Male

DRUGS (4)
  1. EVIPLERA [Suspect]
     Active Substance: EMTRICITABINE\RILPIVIRINE\TENOFOVIR DISOPROXIL FUMARATE
     Indication: PRODUCT USED FOR UNKNOWN INDICATION
     Dosage: UNK
     Route: 065
     Dates: start: 201501
  2. LITHIUM                            /00033702/ [Concomitant]
     Indication: PSYCHOTIC DISORDER
  3. ESCITALOPRAM                       /01588502/ [Concomitant]
     Indication: PSYCHOTIC DISORDER
  4. ARIPIPRAZOLE CAVOXIL [Concomitant]
     Indication: PSYCHOTIC DISORDER

REACTIONS (1)
  - Psychotic disorder [Unknown]
